FAERS Safety Report 7656247-4 (Version None)
Quarter: 2011Q3

REPORT INFORMATION
  Report Type: 
  Country: None (occurrence: None)
  Receive Date: 20110729
  Receipt Date: 20110718
  Transmission Date: 20111222
  Serious: Yes (Other)
  Sender: FDA-Public Use
  Company Number: JPI-P-007545

PATIENT
  Age: 52 Year
  Sex: Female
  Weight: 72.5755 kg

DRUGS (8)
  1. UNSPECIFIED NON-STEROIDAL ANTI-INFLAMMATORY DRUGS [Suspect]
     Indication: MIGRAINE
     Dates: start: 19540101
  2. UNSPECIFIED NON-STEROIDAL ANTI-INFLAMMATORY DRUGS [Suspect]
     Indication: CATAPLEXY
     Dates: start: 19540101
  3. XYREM [Suspect]
     Indication: FIBROMYALGIA
     Dosage: SEE IMAGE
     Route: 048
     Dates: start: 20030919
  4. XYREM [Suspect]
     Indication: MIGRAINE
     Dosage: SEE IMAGE
     Route: 048
     Dates: start: 20030919
  5. XYREM [Suspect]
     Indication: CATAPLEXY
     Dosage: SEE IMAGE
     Route: 048
     Dates: start: 20030919
  6. XYREM [Suspect]
     Indication: FIBROMYALGIA
     Dosage: SEE IMAGE
     Route: 048
     Dates: start: 20090421
  7. XYREM [Suspect]
     Indication: MIGRAINE
     Dosage: SEE IMAGE
     Route: 048
     Dates: start: 20090421
  8. XYREM [Suspect]
     Indication: CATAPLEXY
     Dosage: SEE IMAGE
     Route: 048
     Dates: start: 20090421

REACTIONS (10)
  - RENAL FAILURE CHRONIC [None]
  - HYPERTENSION [None]
  - BACK PAIN [None]
  - FALL [None]
  - MOVEMENT DISORDER [None]
  - SKIN HAEMORRHAGE [None]
  - ARTHRALGIA [None]
  - NIGHT SWEATS [None]
  - GROIN PAIN [None]
  - SKIN DISORDER [None]
